FAERS Safety Report 14181953 (Version 1)
Quarter: 2017Q4

REPORT INFORMATION
  Report Type: Spontaneous
  Country: US (occurrence: US)
  Receive Date: 20171113
  Receipt Date: 20171113
  Transmission Date: 20180321
  Serious: Yes (Other)
  Sender: FDA-Public Use
  Company Number: US-AMGEN-USASP2017169403

PATIENT

DRUGS (4)
  1. 5-FU [Suspect]
     Active Substance: FLUOROURACIL
     Indication: NEOPLASM
     Dosage: UNK
     Route: 042
  2. FILGRASTIM [Suspect]
     Active Substance: FILGRASTIM
     Indication: NEOPLASM
     Dosage: 5 MUG/KG, UNK
     Route: 058
  3. INTERFERON ALFA-2A [Suspect]
     Active Substance: INTERFERON ALFA-2A
     Indication: NEOPLASM
     Dosage: UNK
     Route: 058
  4. 5-FU [Suspect]
     Active Substance: FLUOROURACIL
     Dosage: UNK, QWK (WEEKLY)
     Route: 040

REACTIONS (16)
  - Leukopenia [Unknown]
  - Skin toxicity [Unknown]
  - Vomiting [Unknown]
  - Platelet count decreased [Unknown]
  - Nausea [Unknown]
  - Staphylococcal sepsis [Unknown]
  - Granulocytopenia [Unknown]
  - Pyrexia [Unknown]
  - Haemoglobin decreased [Unknown]
  - Fatigue [Unknown]
  - Infection [Unknown]
  - Hepatotoxicity [Unknown]
  - Gastrointestinal haemorrhage [Unknown]
  - Neurotoxicity [Unknown]
  - Sepsis [Unknown]
  - Diarrhoea [Unknown]
